FAERS Safety Report 8900068 (Version 1)
Quarter: 2012Q4

REPORT INFORMATION
  Report Type: 
  Country: US (occurrence: US)
  Receive Date: 20121109
  Receipt Date: 20121109
  Transmission Date: 20130627
  Serious: No
  Sender: FDA-Public Use
  Company Number: US-009507513-1211USA003510

PATIENT
  Age: 74 Year
  Sex: Female

DRUGS (6)
  1. DULERA [Suspect]
     Dosage: UNK
     Dates: start: 20120111
  2. PAXIL [Concomitant]
     Dosage: 40 mg, UNK
  3. DIOVAN [Concomitant]
     Dosage: 40 mg, UNK
  4. NORVASC [Concomitant]
     Dosage: 5 mg, qd
  5. NEXIUM [Concomitant]
  6. KLONOPIN [Concomitant]
     Dosage: 2 mg, bid

REACTIONS (2)
  - Dizziness [Not Recovered/Not Resolved]
  - Nausea [Not Recovered/Not Resolved]
